FAERS Safety Report 11158327 (Version 1)
Quarter: 2015Q2

REPORT INFORMATION
  Report Type: Report from Study
  Country: NL (occurrence: NL)
  Receive Date: 20150603
  Receipt Date: 20150603
  Transmission Date: 20150821
  Serious: Yes (Hospitalization)
  Sender: FDA-Public Use
  Company Number: NL-ABBVIE-15P-114-1336161-00

PATIENT
  Sex: Male
  Weight: 60 kg

DRUGS (1)
  1. DUODOPA [Suspect]
     Active Substance: CARBIDOPA\LEVODOPA
     Indication: PARKINSON^S DISEASE
     Dosage: 20/5 MG/ML; MD: 10.2, CD: 4.8, ED: 3.7, ND: UNKNOWN.
     Route: 050
     Dates: start: 20140703

REACTIONS (1)
  - Medical device site reaction [Recovering/Resolving]

NARRATIVE: CASE EVENT DATE: 2014
